FAERS Safety Report 7538893-1 (Version None)
Quarter: 2011Q2

REPORT INFORMATION
  Report Type: 
  Country: None (occurrence: None)
  Receive Date: 20110610
  Receipt Date: 20110526
  Transmission Date: 20111010
  Serious: Yes (Other)
  Sender: FDA-Public Use
  Company Number: CA-JNJFOC-20100801095

PATIENT
  Sex: Female
  Weight: 77 kg

DRUGS (4)
  1. FERROUS SULFATE TAB [Concomitant]
  2. CLARITIN [Concomitant]
  3. IMURAN [Concomitant]
  4. REMICADE [Suspect]
     Indication: CROHN'S DISEASE
     Dosage: DOSE PROVIDED AS BOTH 10 MG/KG AND 5 MG/KG
     Route: 042
     Dates: start: 20090724

REACTIONS (3)
  - ABDOMINAL PAIN [None]
  - VIRAL INFECTION [None]
  - VOMITING [None]
